FAERS Safety Report 20484713 (Version 1)
Quarter: 2022Q1

REPORT INFORMATION
  Report Type: Spontaneous
  Country: US (occurrence: US)
  Receive Date: 20220217
  Receipt Date: 20220217
  Transmission Date: 20220423
  Serious: No
  Sender: FDA-Public Use
  Company Number: US-drreddys-SPO/USA/22/0146779

PATIENT
  Age: 67 Year
  Sex: Female
  Weight: 50.85 kg

DRUGS (2)
  1. NICOTINE [Suspect]
     Active Substance: NICOTINE
     Indication: Tobacco user
     Route: 062
     Dates: start: 20211231
  2. NICOTINE [Suspect]
     Active Substance: NICOTINE
     Indication: Tobacco user
     Route: 062
     Dates: start: 20211231

REACTIONS (6)
  - Application site burn [Unknown]
  - Application site erythema [Unknown]
  - Application site pruritus [Unknown]
  - Product use issue [Unknown]
  - Underdose [Unknown]
  - Product adhesion issue [Unknown]
